FAERS Safety Report 4360526-6 (Version None)
Quarter: 2004Q2

REPORT INFORMATION
  Report Type: 
  Country: None (occurrence: None)
  Receive Date: 20040519
  Receipt Date: 20040511
  Transmission Date: 20050107
  Serious: Yes (Other)
  Sender: FDA-Public Use
  Company Number: US-GLAXOSMITHKLINE-A0510487A

PATIENT
  Sex: Female

DRUGS (6)
  1. LOTRONEX [Suspect]
     Dosage: 1MG TWICE PER DAY
     Route: 048
     Dates: start: 20040429, end: 20040506
  2. DYAZIDE [Concomitant]
  3. LEVBID [Concomitant]
  4. TUMS [Concomitant]
  5. LIBRAX [Concomitant]
  6. LOMOTIL [Concomitant]

REACTIONS (3)
  - CONSTIPATION [None]
  - PAIN [None]
  - VOMITING [None]
